FAERS Safety Report 6942660-7 (Version None)
Quarter: 2010Q3

REPORT INFORMATION
  Report Type: 
  Country: None (occurrence: None)
  Receive Date: 20100826
  Receipt Date: 20100812
  Transmission Date: 20110219
  Serious: Yes (Hospitalization, Other)
  Sender: FDA-Public Use
  Company Number: PHEH2007US14474

PATIENT
  Sex: Female
  Weight: 102.6 kg

DRUGS (7)
  1. ZOMETA [Suspect]
     Indication: METASTASES TO BONE
     Dosage: 4 MG, QMO
     Dates: start: 20020812, end: 20041001
  2. EPOTHILONE A [Concomitant]
     Indication: METASTATIC RENAL CELL CARCINOMA
     Dosage: UNK
  3. GLUTAMINE [Concomitant]
  4. OXYCODONE HCL [Concomitant]
  5. AXID [Concomitant]
  6. KEFLEX [Concomitant]
  7. PROTONIX [Concomitant]

REACTIONS (41)
  - ABDOMINAL PAIN UPPER [None]
  - ACTIVITIES OF DAILY LIVING IMPAIRED [None]
  - ARTHRALGIA [None]
  - BACK PAIN [None]
  - BACTERIAL DISEASE CARRIER [None]
  - BENIGN PANCREATIC NEOPLASM [None]
  - BLOOD CALCIUM DECREASED [None]
  - BONE DEBRIDEMENT [None]
  - BONE LESION [None]
  - BONE PAIN [None]
  - COUGH [None]
  - DEVICE FAILURE [None]
  - DIARRHOEA [None]
  - DISCOMFORT [None]
  - DYSPNOEA [None]
  - FATIGUE [None]
  - HEPATIC STEATOSIS [None]
  - HYPOAESTHESIA [None]
  - HYPOXIA [None]
  - INJURY [None]
  - INTERVERTEBRAL DISC DEGENERATION [None]
  - JAW OPERATION [None]
  - LUNG DISORDER [None]
  - MANDIBULAR PROSTHESIS USER [None]
  - METASTASES TO SPINE [None]
  - MUSCLE SPASMS [None]
  - NASAL CONGESTION [None]
  - NASOPHARYNGITIS [None]
  - NEUROPATHY PERIPHERAL [None]
  - OSTEOARTHRITIS [None]
  - OSTEOMYELITIS [None]
  - OSTEONECROSIS OF JAW [None]
  - PANCREATECTOMY [None]
  - PANCREATIC CYST [None]
  - PARAESTHESIA [None]
  - PRODUCTIVE COUGH [None]
  - SPLENECTOMY [None]
  - SWELLING [None]
  - SWELLING FACE [None]
  - TOOTH EXTRACTION [None]
  - VISION BLURRED [None]
